FAERS Safety Report 7773075-X (Version None)
Quarter: 2011Q3

REPORT INFORMATION
  Report Type: 
  Country: None (occurrence: None)
  Receive Date: 20110922
  Receipt Date: 20110311
  Transmission Date: 20111222
  Serious: Yes (Hospitalization)
  Sender: FDA-Public Use
  Company Number: US-ASTRAZENECA-2011SE13727

PATIENT
  Age: 35 Year
  Sex: Male

DRUGS (7)
  1. DOXEPIN [Suspect]
     Route: 065
  2. SAPHRIS [Suspect]
     Route: 065
  3. LAMOTRIGINE [Suspect]
     Route: 065
  4. OXCARBAZEPINE [Suspect]
     Route: 065
  5. SYNTHROID [Suspect]
     Indication: HYPOTHYROIDISM
     Route: 065
  6. SEROQUEL [Suspect]
     Route: 048
  7. LITHIUM CARBONATE [Suspect]
     Indication: BIPOLAR DISORDER
     Route: 065

REACTIONS (4)
  - HYPOTHYROIDISM [None]
  - RENAL IMPAIRMENT [None]
  - DRUG DOSE OMISSION [None]
  - BIPOLAR DISORDER [None]
